FAERS Safety Report 25651021 (Version 3)
Quarter: 2025Q4

REPORT INFORMATION
  Report Type: Spontaneous
  Country: US (occurrence: US)
  Receive Date: 20250806
  Receipt Date: 20251013
  Transmission Date: 20260118
  Serious: Yes (Other)
  Sender: Kenvue
  Company Number: US-KENVUE-20250710959

PATIENT
  Age: 0 Year
  Sex: Female

DRUGS (10)
  1. TYLENOL [Suspect]
     Active Substance: ACETAMINOPHEN
     Indication: Migraine
     Dosage: 1300 MILLIGRAM, AS NEEDED (PRN)
     Route: 064
  2. TYLENOL [Suspect]
     Active Substance: ACETAMINOPHEN
     Indication: Migraine
     Dosage: 2600-3900 MG, AS NEEDED
     Route: 064
  3. BENADRYL [Suspect]
     Active Substance: DIPHENHYDRAMINE HYDROCHLORIDE
     Indication: Migraine
     Dosage: UNK, AS NEEDED (PRN)
     Route: 064
  4. NURTEC ODT [Suspect]
     Active Substance: RIMEGEPANT SULFATE
     Indication: Migraine
     Dosage: 75 MILLIGRAM, AS NEEDED (PRN)
     Route: 064
     Dates: start: 202406
  5. EXCEDRIN MIGRAINE [Suspect]
     Active Substance: ACETAMINOPHEN\ASPIRIN\CAFFEINE
     Indication: Migraine
     Dosage: 1-4 TABLETS , AS NEEDED (PRN)
     Route: 064
  6. RELPAX [Suspect]
     Active Substance: ELETRIPTAN HYDROBROMIDE
     Indication: Migraine
     Dosage: 60 MILLIGRAM, AS NEEDED
     Route: 064
     Dates: start: 2013
  7. TRAMADOL [Suspect]
     Active Substance: TRAMADOL
     Indication: Migraine
     Dosage: 50 MILLIGRAM, AS NEEDED (PRN)
     Route: 064
     Dates: start: 202411
  8. FENTANYL [Suspect]
     Active Substance: FENTANYL
     Indication: Migraine
     Dosage: 100 MICROGRAM, AS NEEDED (PRN)
     Route: 064
  9. ZOFRAN [Suspect]
     Active Substance: ONDANSETRON HYDROCHLORIDE
     Indication: Migraine
     Dosage: 4 MILLIGRAM, AS NEEDED (PRN)
     Route: 064
  10. FIORICET [Suspect]
     Active Substance: ACETAMINOPHEN\BUTALBITAL\CAFFEINE
     Indication: Migraine
     Dosage: AS NEEDED (PRN)
     Route: 064

REACTIONS (3)
  - Premature baby [Recovered/Resolved]
  - Foetal exposure during pregnancy [Unknown]
  - Prenatal screening test [Recovered/Resolved]

NARRATIVE: CASE EVENT DATE: 20250505
